FAERS Safety Report 19982833 (Version 2)
Quarter: 2021Q4

REPORT INFORMATION
  Report Type: Spontaneous
  Country: None (occurrence: US)
  Receive Date: 20211022
  Receipt Date: 20211208
  Transmission Date: 20220304
  Serious: Yes (Other)
  Sender: FDA-Public Use
  Company Number: US-IMPRIMIS NJOF-2120878

PATIENT
  Sex: Female

DRUGS (1)
  1. NEPAFENAC\PREDNISOLONE ACETATE [Suspect]
     Active Substance: NEPAFENAC\PREDNISOLONE ACETATE
     Route: 047

REACTIONS (1)
  - Hypersensitivity [Recovering/Resolving]
